FAERS Safety Report 5796361-1 (Version None)
Quarter: 2008Q2

REPORT INFORMATION
  Report Type: 
  Country: None (occurrence: None)
  Receive Date: 20080630
  Receipt Date: 20080630
  Transmission Date: 20081010
  Serious: No
  Sender: FDA-Public Use
  Company Number: None

PATIENT
  Age: 37 Year
  Sex: Male
  Weight: 84.8226 kg

DRUGS (1)
  1. TINACTIN POWDER [Suspect]
     Dosage: SPRAY FEET TWICE DAILY TOP
     Route: 061

REACTIONS (2)
  - MEDICATION TAMPERING [None]
  - PRURITUS [None]
